FAERS Safety Report 4307469-1 (Version None)
Quarter: 2004Q1

REPORT INFORMATION
  Report Type: 
  Country: None (occurrence: None)
  Receive Date: 20040226
  Receipt Date: 20040223
  Transmission Date: 20041129
  Serious: Yes (Hospitalization)
  Sender: FDA-Public Use
  Company Number: GB-JNJFOC-20040204842

PATIENT
  Age: 52 Year
  Sex: Female

DRUGS (11)
  1. REMICADE [Suspect]
     Indication: RHEUMATOID ARTHRITIS
     Dosage: 200 MG, INTRAVENOUS
     Route: 042
     Dates: start: 20030715
  2. NAPROXEN [Concomitant]
  3. COCODAMOL (PANADEINE CO) [Concomitant]
  4. SULFASALAZINE [Concomitant]
  5. HYDROXYCHLOROQUINE SULFATE [Concomitant]
  6. METHOTREXATE [Concomitant]
  7. FOLIC ACID [Concomitant]
  8. DIAZEPAM [Concomitant]
  9. LOSEC (OMEPRAZOLE) [Concomitant]
  10. FUROSEMIDE [Concomitant]
  11. BISOPROLOL FUMARATE [Concomitant]

REACTIONS (2)
  - DYSPNOEA [None]
  - PNEUMONITIS [None]
